FAERS Safety Report 16063895 (Version 1)
Quarter: 2019Q1

REPORT INFORMATION
  Report Type: Spontaneous
  Country: FR (occurrence: FR)
  Receive Date: 20190312
  Receipt Date: 20190312
  Transmission Date: 20190418
  Serious: Yes (Other)
  Sender: FDA-Public Use
  Company Number: FR-MYLANLABS-2019M1022023

PATIENT
  Age: 37 Year
  Sex: Male

DRUGS (3)
  1. DOXYCYCLINE. [Suspect]
     Active Substance: DOXYCYCLINE
     Indication: OSTEITIS
     Dosage: 200 MILLIGRAM, QD
     Route: 048
     Dates: start: 20180724, end: 20180807
  2. CEFOTAXIME [Suspect]
     Active Substance: CEFOTAXIME SODIUM
     Indication: OSTEITIS
     Dosage: 6 GRAM, QD
     Route: 042
     Dates: start: 20180716, end: 20180807
  3. XYDALBA [Suspect]
     Active Substance: DALBAVANCIN HYDROCHLORIDE
     Indication: OSTEITIS
     Dosage: 500 MILLIGRAM, QW
     Route: 042
     Dates: start: 20180724, end: 20180807

REACTIONS (2)
  - Neutropenia [Recovered/Resolved]
  - Rash [Recovered/Resolved]

NARRATIVE: CASE EVENT DATE: 20180802
